FAERS Safety Report 24069300 (Version 1)
Quarter: 2024Q3

REPORT INFORMATION
  Report Type: Report from Study
  Country: US (occurrence: US)
  Receive Date: 20240710
  Receipt Date: 20240710
  Transmission Date: 20241016
  Serious: No
  Sender: ROCHE
  Company Number: US-ROCHE-3556382

PATIENT
  Age: 67 Year
  Sex: Male

DRUGS (6)
  1. FARICIMAB [Suspect]
     Active Substance: FARICIMAB
     Indication: Diabetic retinal oedema
     Dosage: DATE OF MOST RECENT DOSE: 04/DEC/2023
     Route: 050
  2. LOSARTAN [Concomitant]
     Active Substance: LOSARTAN
     Indication: Hypertension
     Route: 048
     Dates: start: 2013
  3. HUMULIN NOS [Concomitant]
     Active Substance: INSULIN HUMAN
     Indication: Diabetes mellitus
     Route: 058
     Dates: start: 2023
  4. SIMVASTATIN [Concomitant]
     Active Substance: SIMVASTATIN
     Indication: Hypercholesterolaemia
     Route: 048
     Dates: start: 2013
  5. PLAVIX [Concomitant]
     Active Substance: CLOPIDOGREL BISULFATE
     Indication: Intermittent claudication
     Route: 048
     Dates: start: 2015
  6. ASPIRIN [Concomitant]
     Active Substance: ASPIRIN
     Indication: Intermittent claudication
     Dates: start: 2013

REACTIONS (1)
  - Epiretinal membrane [Recovered/Resolved]

NARRATIVE: CASE EVENT DATE: 20240104
